FAERS Safety Report 19902628 (Version 2)
Quarter: 2022Q1

REPORT INFORMATION
  Report Type: Spontaneous
  Country: JP (occurrence: JP)
  Receive Date: 20210930
  Receipt Date: 20220204
  Transmission Date: 20220423
  Serious: Yes (Other)
  Sender: FDA-Public Use
  Company Number: JP-SA-2021SA318786

PATIENT
  Age: 42 Year
  Sex: Female

DRUGS (2)
  1. LANTUS SOLOSTAR [Suspect]
     Active Substance: INSULIN GLARGINE
     Indication: Type 1 diabetes mellitus
     Dosage: 12 U
     Route: 058
  2. INSULIN ASPART [Suspect]
     Active Substance: INSULIN ASPART
     Indication: Type 1 diabetes mellitus
     Dosage: 18 U
     Route: 058

REACTIONS (9)
  - Cardiac failure congestive [Recovering/Resolving]
  - Pulmonary oedema [Unknown]
  - Drug abuse [Unknown]
  - Blood insulin increased [Unknown]
  - Pyrexia [Unknown]
  - Blood pressure decreased [Unknown]
  - Anaemia [Unknown]
  - Generalised oedema [Unknown]
  - Hypoglycaemia [Recovered/Resolved]
